FAERS Safety Report 5067075-0 (Version None)
Quarter: 2006Q3

REPORT INFORMATION
  Report Type: 
  Country: None (occurrence: None)
  Receive Date: 20060801
  Receipt Date: 20060724
  Transmission Date: 20061208
  Serious: Yes (Other)
  Sender: FDA-Public Use
  Company Number: US-GLAXOSMITHKLINE-A0613241A

PATIENT
  Age: 96 Year
  Sex: Female

DRUGS (9)
  1. CITRUCEL [Suspect]
     Indication: DRUG USE FOR UNKNOWN INDICATION
  2. PRILOSEC [Concomitant]
  3. CELEXA [Concomitant]
  4. SEROQUEL [Concomitant]
  5. ATENOLOL [Concomitant]
  6. ASPIRIN [Concomitant]
  7. LASIX [Concomitant]
  8. MULTIVITAMIN [Concomitant]
  9. POTASSIUM CHLORIDE [Concomitant]

REACTIONS (6)
  - ABDOMINAL PAIN [None]
  - FALL [None]
  - HIP FRACTURE [None]
  - INTESTINAL OBSTRUCTION [None]
  - THROMBOSIS [None]
  - TREATMENT NONCOMPLIANCE [None]
